FAERS Safety Report 9396807 (Version 1)
Quarter: 2013Q3

REPORT INFORMATION
  Report Type: Spontaneous
  Country: GB (occurrence: GB)
  Receive Date: 20130712
  Receipt Date: 20130712
  Transmission Date: 20140515
  Serious: Yes (Hospitalization)
  Sender: FDA-Public Use
  Company Number: GB-BRISTOL-MYERS SQUIBB COMPANY-19083773

PATIENT
  Age: 60 Year
  Sex: Female

DRUGS (1)
  1. COAPROVEL TABS 300MG/12.5MG [Suspect]
     Indication: HYPERTENSION
     Dosage: TABS.?STRENGTH:300MG/12.5MG.
     Route: 048

REACTIONS (3)
  - Incorrect dose administered [Unknown]
  - Malaise [Unknown]
  - Dysgeusia [Unknown]
